FAERS Safety Report 21905183 (Version 1)
Quarter: 2023Q1

REPORT INFORMATION
  Report Type: Spontaneous
  Country: US (occurrence: None)
  Receive Date: 20230123
  Receipt Date: 20230123
  Transmission Date: 20230418
  Serious: Yes (Life-Threatening, Hospitalization)
  Sender: FDA-Public Use
  Company Number: None

PATIENT
  Age: 93 Year
  Sex: Female
  Weight: 36 kg

DRUGS (3)
  1. FENTANYL [Suspect]
     Active Substance: FENTANYL
     Dates: start: 20230119, end: 20230119
  2. MIDAZOLAM [Suspect]
     Active Substance: MIDAZOLAM
  3. GLUCAGON [Suspect]
     Active Substance: GLUCAGON

REACTIONS (3)
  - Apnoea [None]
  - Oxygen saturation decreased [None]
  - Heart rate increased [None]

NARRATIVE: CASE EVENT DATE: 20230119
